FAERS Safety Report 13263891 (Version 1)
Quarter: 2017Q1

REPORT INFORMATION
  Report Type: Spontaneous
  Country: US (occurrence: US)
  Receive Date: 20170223
  Receipt Date: 20170223
  Transmission Date: 20170428
  Serious: No
  Sender: FDA-Public Use
  Company Number: US-PFIZER INC-2017079323

PATIENT
  Age: 57 Year
  Sex: Female

DRUGS (1)
  1. XELJANZ XR [Suspect]
     Active Substance: TOFACITINIB CITRATE
     Dosage: 11 MG, UNK

REACTIONS (12)
  - Back pain [Unknown]
  - Myalgia [Unknown]
  - Hair disorder [Unknown]
  - Arthralgia [Unknown]
  - Joint stiffness [Unknown]
  - Tenderness [Unknown]
  - Joint swelling [Unknown]
  - Joint range of motion decreased [Unknown]
  - Effusion [Unknown]
  - Nodal osteoarthritis [Unknown]
  - Swelling [Unknown]
  - Crepitations [Unknown]
